FAERS Safety Report 5089099-X (Version None)
Quarter: 2006Q3

REPORT INFORMATION
  Report Type: 
  Country: None (occurrence: None)
  Receive Date: 20060822
  Receipt Date: 20060802
  Transmission Date: 20061208
  Serious: Yes (Other)
  Sender: FDA-Public Use
  Company Number: DE200608000727

PATIENT
  Sex: Female

DRUGS (4)
  1. EVISTA [Suspect]
     Indication: OSTEOPOROSIS
     Dosage: ORAL
     Route: 048
     Dates: start: 20010101
  2. ARAVA [Concomitant]
  3. INSULIN, HUMAN (HUMAN INSULIN (RDNA ORIGIN) [Concomitant]
  4. .. [Concomitant]

REACTIONS (1)
  - OVARIAN CANCER [None]
